FAERS Safety Report 7644477-7 (Version None)
Quarter: 2011Q3

REPORT INFORMATION
  Report Type: 
  Country: None (occurrence: None)
  Receive Date: 20110725
  Receipt Date: 20110714
  Transmission Date: 20111222
  Serious: Yes (Death)
  Sender: FDA-Public Use
  Company Number: ABR_00181_2011

PATIENT
  Sex: Male
  Weight: 1.4 kg

DRUGS (5)
  1. AMPICILLIN [Suspect]
     Indication: MATERNAL EXPOSURE DURING PREGNANCY
     Dosage: (UNK [SWITCHED AFTER 2 DAYS] TRANSPLACENTAL); THERAPY DATES: (UNKNOWN UNTIL NOT CONTINUING)
     Route: 064
  2. AMPICILLIN [Suspect]
     Indication: PRODUCT USED FOR UNKNOWN INDICATION
     Dosage: (UNK [SWITCHED AFTER 2 DAYS] TRANSPLACENTAL); THERAPY DATES: (UNKNOWN UNTIL NOT CONTINUING)
     Route: 064
  3. MEROPENEM [Suspect]
     Indication: PRODUCT USED FOR UNKNOWN INDICATION
     Dosage: (DF) (THERAPY DATES: UNKNOWN UNTIL NOT CONTINUING)
  4. ERYTHROMYCIN [Suspect]
     Indication: MATERNAL EXPOSURE DURING PREGNANCY
     Dosage: (UNK TRANSPLACENTAL) THERAPY DATES: (UNKNOWN UNTIL NOT CONTINUING)
  5. GENTAMICIN SULFATE [Suspect]
     Indication: PRODUCT USED FOR UNKNOWN INDICATION
     Dosage: (DF [SWITCHED AFTER 2 DAYS]); THERAPY DATES: UNKNOWN UNTIL NOT CONTINUING)

REACTIONS (9)
  - CANDIDIASIS [None]
  - FUNISITIS [None]
  - PLATELET COUNT DECREASED [None]
  - CHORIOAMNIONITIS [None]
  - MATERNAL DRUGS AFFECTING FOETUS [None]
  - GENERAL PHYSICAL HEALTH DETERIORATION [None]
  - PREMATURE BABY [None]
  - HYPOTENSION [None]
  - SEPSIS NEONATAL [None]
